FAERS Safety Report 12047859 (Version 1)
Quarter: 2016Q1

REPORT INFORMATION
  Report Type: Spontaneous
  Country: FR (occurrence: FR)
  Receive Date: 20160208
  Receipt Date: 20160208
  Transmission Date: 20160526
  Serious: Yes (Hospitalization)
  Sender: FDA-Public Use
  Company Number: FR-SA-2016SA018976

PATIENT
  Age: 73 Year
  Sex: Male

DRUGS (12)
  1. DIFFU K [Concomitant]
     Active Substance: POTASSIUM CHLORIDE
  2. LASILIX [Suspect]
     Active Substance: FUROSEMIDE
     Dosage: 40 MGX2?DOSE REDUCED
     Route: 048
  3. LASILIX [Suspect]
     Active Substance: FUROSEMIDE
     Dosage: 40+20 MG
     Route: 065
     Dates: start: 20160106
  4. CORDARONE [Concomitant]
     Active Substance: AMIODARONE HYDROCHLORIDE
  5. BISOPROLOL HEMIFUMARATE [Concomitant]
     Active Substance: BISOPROLOL FUMARATE
  6. LASILIX [Suspect]
     Active Substance: FUROSEMIDE
     Route: 048
  7. ENTRESTO [Suspect]
     Active Substance: SACUBITRIL\VALSARTAN
     Indication: CARDIAC FAILURE
     Route: 048
     Dates: start: 20151119
  8. BISOPROLOL HEMIFUMARATE [Concomitant]
     Active Substance: BISOPROLOL FUMARATE
     Dates: start: 201511
  9. PREVISCAN [Concomitant]
     Active Substance: FLUINDIONE
  10. ALDACTONE [Concomitant]
     Active Substance: SPIRONOLACTONE
     Dates: start: 201511
  11. LASILIX [Suspect]
     Active Substance: FUROSEMIDE
     Route: 048
  12. XATRAL [Concomitant]
     Active Substance: ALFUZOSIN

REACTIONS (1)
  - Gout [Recovering/Resolving]

NARRATIVE: CASE EVENT DATE: 20160107
